FAERS Safety Report 9669351 (Version 1)
Quarter: 2013Q4

REPORT INFORMATION
  Report Type: Spontaneous
  Country: TR (occurrence: None)
  Receive Date: 20131101
  Receipt Date: 20131101
  Transmission Date: 20140711
  Serious: Yes (Other)
  Sender: FDA-Public Use
  Company Number: 2013P1020425

PATIENT
  Age: 12 Year
  Sex: Female

DRUGS (1)
  1. FLUOXETINE [Suspect]
     Indication: MAJOR DEPRESSION

REACTIONS (10)
  - Nervousness [None]
  - Logorrhoea [None]
  - Aggression [None]
  - Insomnia [None]
  - Libido increased [None]
  - Irritability [None]
  - Tachyphrenia [None]
  - Grandiosity [None]
  - Psychomotor hyperactivity [None]
  - Mania [None]
